FAERS Safety Report 16759514 (Version 1)
Quarter: 2019Q4

REPORT INFORMATION
  Report Type: Spontaneous
  Country: US (occurrence: US)
  Receive Date: 20190829
  Receipt Date: 20190829
  Transmission Date: 20200122
  Serious: Yes (Hospitalization)
  Sender: FDA-Public Use
  Company Number: None

PATIENT
  Age: 41 Year
  Sex: Female
  Weight: 59.85 kg

DRUGS (2)
  1. PANZYGA [Suspect]
     Active Substance: HUMAN IMMUNOGLOBULIN G
     Indication: DERMATOMYOSITIS
     Route: 041
     Dates: start: 20190827, end: 20190829
  2. PANZYGA [Suspect]
     Active Substance: HUMAN IMMUNOGLOBULIN G
     Indication: DERMATOMYOSITIS
     Route: 041
     Dates: start: 20190827, end: 20190829

REACTIONS (5)
  - Throat tightness [None]
  - Dyspnoea [None]
  - Infusion related reaction [None]
  - Flushing [None]
  - Throat irritation [None]

NARRATIVE: CASE EVENT DATE: 20190829
